FAERS Safety Report 9883598 (Version 3)
Quarter: 2014Q1

REPORT INFORMATION
  Report Type: Spontaneous
  Country: DE (occurrence: DE)
  Receive Date: 20140210
  Receipt Date: 20140331
  Transmission Date: 20141002
  Serious: Yes (Hospitalization)
  Sender: FDA-Public Use
  Company Number: DE-BRISTOL-MYERS SQUIBB COMPANY-20113171

PATIENT
  Age: 64 Year
  Sex: Male

DRUGS (8)
  1. FORXIGA [Suspect]
     Indication: TYPE 2 DIABETES MELLITUS
     Dates: start: 20131128, end: 20131129
  2. LISINOPRIL [Concomitant]
  3. METOPROLOL [Concomitant]
  4. SIMVASTATIN [Concomitant]
  5. TORASEMIDE [Concomitant]
     Dosage: DOSE INCREASED
  6. ACETYLCYSTEINE [Concomitant]
  7. LEVEMIR [Concomitant]
  8. NOVORAPID [Concomitant]

REACTIONS (3)
  - Glycosuria [Unknown]
  - Polydipsia [Unknown]
  - Polyuria [Unknown]
